FAERS Safety Report 9743317 (Version 3)
Quarter: 2015Q3

REPORT INFORMATION
  Report Type: Spontaneous
  Country: US (occurrence: US)
  Receive Date: 20131210
  Receipt Date: 20150805
  Transmission Date: 20151125
  Serious: No
  Sender: FDA-Public Use
  Company Number: US-GILEAD-2009-0025509

PATIENT
  Age: 50 Year
  Sex: Female
  Weight: 97.52 kg

DRUGS (28)
  1. ZOCOR [Concomitant]
     Active Substance: SIMVASTATIN
  2. ASPIRIN. [Concomitant]
     Active Substance: ASPIRIN
  3. COMPAZINE [Concomitant]
     Active Substance: PROCHLORPERAZINE MALEATE
  4. OXYGEN. [Concomitant]
     Active Substance: OXYGEN
  5. HYDROCODONE/APAP [Concomitant]
     Active Substance: ACETAMINOPHEN\HYDROCODONE BITARTRATE
  6. NEURONTIN [Concomitant]
     Active Substance: GABAPENTIN
  7. VITAMIN B12 [Concomitant]
     Active Substance: CYANOCOBALAMIN
  8. POTASSIUM CHLORIDE. [Concomitant]
     Active Substance: POTASSIUM CHLORIDE
  9. SYNTHROID [Concomitant]
     Active Substance: LEVOTHYROXINE SODIUM
  10. VICODIN ES [Concomitant]
     Active Substance: ACETAMINOPHEN\HYDROCODONE BITARTRATE
  11. ZOLOFT [Concomitant]
     Active Substance: SERTRALINE HYDROCHLORIDE
  12. NIACIN. [Concomitant]
     Active Substance: NIACIN
  13. ALDACTONE [Concomitant]
     Active Substance: SPIRONOLACTONE
  14. COUMADIN [Concomitant]
     Active Substance: WARFARIN SODIUM
  15. PAXIL [Concomitant]
     Active Substance: PAROXETINE HYDROCHLORIDE
  16. PHENERGAN [Concomitant]
     Active Substance: PROMETHAZINE HYDROCHLORIDE
  17. CORVALEN [Concomitant]
  18. LETAIRIS [Suspect]
     Active Substance: AMBRISENTAN
     Indication: PULMONARY ARTERIAL HYPERTENSION
     Route: 048
     Dates: start: 20090119
  19. ELAVIL [Concomitant]
     Active Substance: AMITRIPTYLINE HYDROCHLORIDE
  20. TORADOL [Concomitant]
     Active Substance: KETOROLAC TROMETHAMINE
  21. COREG [Concomitant]
     Active Substance: CARVEDILOL
  22. ALTACE [Concomitant]
     Active Substance: RAMIPRIL
  23. XANAX [Concomitant]
     Active Substance: ALPRAZOLAM
  24. BUMEX [Concomitant]
     Active Substance: BUMETANIDE
  25. REVATIO [Concomitant]
     Active Substance: SILDENAFIL CITRATE
  26. PYRIDIUM [Concomitant]
     Active Substance: PHENAZOPYRIDINE
  27. COLACE [Concomitant]
     Active Substance: DOCUSATE SODIUM
  28. AMBIEN [Concomitant]
     Active Substance: ZOLPIDEM TARTRATE

REACTIONS (16)
  - Hepatic steatosis [Unknown]
  - Lacrimation increased [Unknown]
  - Pruritus [Unknown]
  - Regurgitation [Unknown]
  - Headache [Unknown]
  - Nasal congestion [Unknown]
  - Fatigue [Unknown]
  - Abdominal pain lower [Unknown]
  - Weight decreased [Unknown]
  - Nausea [Unknown]
  - Hot flush [Unknown]
  - Muscle spasms [Unknown]
  - Tinnitus [Unknown]
  - Hypogeusia [Unknown]
  - Chest pain [Unknown]
  - Abdominal pain [Unknown]
